FAERS Safety Report 6505859-X (Version None)
Quarter: 2009Q4

REPORT INFORMATION
  Report Type: 
  Country: None (occurrence: None)
  Receive Date: 20091218
  Receipt Date: 20091210
  Transmission Date: 20100525
  Serious: Yes (Death, Life-Threatening, Disabling)
  Sender: FDA-Public Use
  Company Number: JP-ROCHE-641267

PATIENT
  Sex: Male
  Weight: 59.5 kg

DRUGS (20)
  1. AVASTIN [Suspect]
     Indication: COLON CANCER
     Route: 041
     Dates: start: 20081002, end: 20090201
  2. AVASTIN [Suspect]
     Route: 041
     Dates: start: 20090302, end: 20090301
  3. AVASTIN [Suspect]
     Route: 041
     Dates: start: 20090602, end: 20090622
  4. AVASTIN [Suspect]
     Route: 041
     Dates: start: 20090217, end: 20090602
  5. ELPLAT [Concomitant]
     Route: 041
     Dates: start: 20081002, end: 20090201
  6. FLUOROURACIL [Concomitant]
     Dosage: ROUTE: INTRAVENOUS BOLUS
     Route: 042
     Dates: start: 20081002, end: 20090201
  7. FLUOROURACIL [Concomitant]
     Dosage: ROUTE: INTRAVENOUS DRIP
     Route: 042
     Dates: start: 20081002, end: 20090201
  8. FLUOROURACIL [Concomitant]
     Dosage: ROUTE: INTRAVENOUS DRIP
     Route: 042
     Dates: start: 20090217, end: 20090601
  9. FLUOROURACIL [Concomitant]
     Dosage: ROUTE: INTRAVENOUS BOLUS
     Route: 042
     Dates: start: 20090217, end: 20090602
  10. FLUOROURACIL [Concomitant]
     Dosage: ROUTE: INTRAVENOUS BOLUS
     Route: 042
     Dates: start: 20090302, end: 20090301
  11. FLUOROURACIL [Concomitant]
     Dosage: ROUTE: INTRAVENOUS DRIP
     Route: 042
     Dates: start: 20090302, end: 20090301
  12. FLUOROURACIL [Concomitant]
     Dosage: ROUTE: INTRAVENOUS BOLUS
     Route: 042
     Dates: start: 20090602, end: 20090622
  13. FLUOROURACIL [Concomitant]
     Dosage: ROUTE: INTRAVENOUS DRIP
     Route: 042
     Dates: start: 20090602, end: 20090601
  14. CALCIUM LEVOFOLINATE [Concomitant]
     Dosage: DRUG NAME: LEVOFOLINATE CALCIUM
     Route: 041
     Dates: start: 20081002, end: 20090201
  15. CALCIUM LEVOFOLINATE [Concomitant]
     Dosage: ROUTE: INTRAVENOUS DRIP
     Route: 041
     Dates: start: 20090217, end: 20090602
  16. CALCIUM LEVOFOLINATE [Concomitant]
     Route: 041
     Dates: start: 20090302, end: 20090301
  17. CALCIUM LEVOFOLINATE [Concomitant]
     Route: 041
     Dates: start: 20090602, end: 20090622
  18. IRINOTECAN HCL [Concomitant]
     Dosage: ROUTE: INTRAVENOUS DRIP  DRUG: TOPOTECIN
     Route: 041
     Dates: start: 20090217, end: 20090602
  19. IRINOTECAN HCL [Concomitant]
     Route: 041
     Dates: start: 20090302, end: 20090301
  20. IRINOTECAN HCL [Concomitant]
     Route: 041
     Dates: start: 20090602, end: 20090622

REACTIONS (2)
  - DISEASE PROGRESSION [None]
  - RECTAL PERFORATION [None]
